FAERS Safety Report 23136378 (Version 1)
Quarter: 2023Q4

REPORT INFORMATION
  Report Type: Spontaneous
  Country: DE (occurrence: DE)
  Receive Date: 20231102
  Receipt Date: 20231102
  Transmission Date: 20240110
  Serious: Yes (Hospitalization, Other)
  Sender: FDA-Public Use
  Company Number: DE-EMA-DD-20190514-bhardwaj_r-155836

PATIENT

DRUGS (37)
  1. PREGABALIN [Suspect]
     Active Substance: PREGABALIN
     Indication: Herpes zoster
     Route: 065
  2. PREGABALIN [Suspect]
     Active Substance: PREGABALIN
     Indication: Post herpetic neuralgia
  3. HYDROMORPHONE [Suspect]
     Active Substance: HYDROMORPHONE
     Indication: Pain
     Dosage: 4-0-4 MG
     Route: 065
  4. HYDROMORPHONE [Suspect]
     Active Substance: HYDROMORPHONE
     Indication: Post herpetic neuralgia
     Dosage: 4 MG, 2X/DAY (4 - 0 - 4 MG)
     Route: 065
  5. HYDROMORPHONE [Suspect]
     Active Substance: HYDROMORPHONE
     Indication: Trigeminal neuralgia
  6. LIDOCAINE [Suspect]
     Active Substance: LIDOCAINE
     Indication: Pain
     Dosage: AT NIGHT
     Route: 061
  7. LIDOCAINE [Suspect]
     Active Substance: LIDOCAINE
     Indication: Post herpetic neuralgia
  8. CAPSAICIN [Suspect]
     Active Substance: CAPSAICIN
     Indication: Post herpetic neuralgia
     Route: 061
  9. LIDOCAINE [Suspect]
     Active Substance: LIDOCAINE
     Indication: Pain
     Dosage: AT NIGHT
     Route: 065
  10. LIDOCAINE [Suspect]
     Active Substance: LIDOCAINE
     Indication: Post herpetic neuralgia
  11. LIDOCAINE [Suspect]
     Active Substance: LIDOCAINE
     Indication: Trigeminal neuralgia
  12. GABAPENTIN [Suspect]
     Active Substance: GABAPENTIN
     Indication: Pain
     Route: 065
  13. GABAPENTIN [Suspect]
     Active Substance: GABAPENTIN
     Indication: Post herpetic neuralgia
     Dosage: INCREASED DOSE TO 2400 MG/DAY
     Route: 065
  14. GABAPENTIN [Suspect]
     Active Substance: GABAPENTIN
     Indication: Trigeminal neuralgia
     Dosage: 300-300-300
     Route: 065
  15. GABAPENTIN [Suspect]
     Active Substance: GABAPENTIN
     Route: 065
  16. GABAPENTIN [Suspect]
     Active Substance: GABAPENTIN
     Dosage: 3X600MG. 1800 MG/D
     Route: 065
  17. GABAPENTIN [Suspect]
     Active Substance: GABAPENTIN
     Dosage: 600-300-300 MG, THE MAN TOOK INCREASED DOSE UP TO 2400 MG/DAY
     Route: 065
  18. GABAPENTIN [Suspect]
     Active Substance: GABAPENTIN
     Dosage: GABAPENTIN 300-300-300
     Route: 065
  19. GABAPENTIN [Suspect]
     Active Substance: GABAPENTIN
     Dosage: 600-300-300 MG (WEEK 17)
     Route: 065
  20. ACYCLOVIR [Suspect]
     Active Substance: ACYCLOVIR
     Indication: Herpes zoster
     Route: 065
  21. ACYCLOVIR [Suspect]
     Active Substance: ACYCLOVIR
     Indication: Herpes zoster
  22. DEXAMETHASONE [Suspect]
     Active Substance: DEXAMETHASONE
     Indication: Pain
     Route: 065
  23. DEXAMETHASONE [Suspect]
     Active Substance: DEXAMETHASONE
     Indication: Post herpetic neuralgia
  24. AMITRIPTYLINE [Suspect]
     Active Substance: AMITRIPTYLINE
     Indication: Pain
     Dosage: 10 DROPS
     Route: 065
  25. AMITRIPTYLINE [Suspect]
     Active Substance: AMITRIPTYLINE
     Indication: Post herpetic neuralgia
     Dosage: 20 MG, UNK
     Route: 065
  26. AMITRIPTYLINE [Suspect]
     Active Substance: AMITRIPTYLINE
     Indication: Trigeminal neuralgia
     Dosage: 25 UNK
     Route: 065
  27. AMITRIPTYLINE [Suspect]
     Active Substance: AMITRIPTYLINE
     Dosage: AMITRIPTYLINE 10 DROPS (WEEK 8)
     Route: 065
  28. AMBROXOL [Suspect]
     Active Substance: AMBROXOL
     Indication: Pain
     Dosage: 20% OINTMNET
     Route: 061
  29. AMBROXOL [Suspect]
     Active Substance: AMBROXOL
     Indication: Post herpetic neuralgia
  30. OXCARBAZEPINE [Suspect]
     Active Substance: OXCARBAZEPINE
     Indication: Pain
     Dosage: 4X150 MG LATER REDUCED TO 2X150 MG
     Route: 065
  31. OXCARBAZEPINE [Suspect]
     Active Substance: OXCARBAZEPINE
     Indication: Post herpetic neuralgia
     Dosage: 600 MG, UNK
     Route: 065
  32. OXCARBAZEPINE [Suspect]
     Active Substance: OXCARBAZEPINE
     Indication: Trigeminal neuralgia
     Dosage: 150 MG, 2X/DAY
     Route: 065
  33. TAPENTADOL HYDROCHLORIDE [Suspect]
     Active Substance: TAPENTADOL HYDROCHLORIDE
     Indication: Pain
     Dosage: 100-100-200 MG(AFTER 8 MONTHS)
     Route: 065
  34. TAPENTADOL HYDROCHLORIDE [Suspect]
     Active Substance: TAPENTADOL HYDROCHLORIDE
     Indication: Post herpetic neuralgia
     Dosage: 150-150-200 MG LATER REDUCED TO 100-100-200 MG
     Route: 065
  35. TAPENTADOL HYDROCHLORIDE [Suspect]
     Active Substance: TAPENTADOL HYDROCHLORIDE
     Indication: Trigeminal neuralgia
     Dosage: 500 MG, 1X/DAY (150 - 150 - 200 MG)
     Route: 065
  36. DEXKETOPROFEN [Concomitant]
     Active Substance: DEXKETOPROFEN
     Indication: Post herpetic neuralgia
     Dosage: FOR 60 MINUTES
     Route: 065
  37. AMBROXOL [Concomitant]
     Active Substance: AMBROXOL
     Indication: Product used for unknown indication
     Route: 065

REACTIONS (25)
  - Post herpetic neuralgia [Unknown]
  - Atrial fibrillation [Unknown]
  - Glaucoma [Unknown]
  - Sleep apnoea syndrome [Recovered/Resolved]
  - Benign prostatic hyperplasia [Unknown]
  - Liver function test increased [Unknown]
  - Quality of life decreased [Unknown]
  - Osteoarthritis [Unknown]
  - Application site pain [Unknown]
  - Intentional product use issue [Unknown]
  - Drug ineffective [Unknown]
  - Sleep deficit [Recovered/Resolved]
  - Off label use [Unknown]
  - Drug eruption [Unknown]
  - Application site erythema [Unknown]
  - Constipation [Unknown]
  - Confusional state [Unknown]
  - Fall [Unknown]
  - Depression [Unknown]
  - Fatigue [Unknown]
  - Nasopharyngitis [Unknown]
  - Hypoaesthesia [Unknown]
  - Blood creatinine increased [Unknown]
  - Hyperaesthesia [Unknown]
  - Insomnia [Unknown]
